FAERS Safety Report 8362376-2 (Version None)
Quarter: 2012Q2

REPORT INFORMATION
  Report Type: 
  Country: None (occurrence: None)
  Receive Date: 20120516
  Receipt Date: 20120508
  Transmission Date: 20120825
  Serious: No
  Sender: FDA-Public Use
  Company Number: US-BIOGENIDEC-2011BI025936

PATIENT
  Sex: Male

DRUGS (1)
  1. TYSABRI [Suspect]
     Indication: MULTIPLE SCLEROSIS
     Route: 042
     Dates: start: 20100805, end: 20110330

REACTIONS (6)
  - URINARY TRACT INFECTION [None]
  - DIARRHOEA [None]
  - URINARY RETENTION [None]
  - DRUG INEFFECTIVE [None]
  - CONSTIPATION [None]
  - MUSCULAR WEAKNESS [None]
